FAERS Safety Report 6460008-1 (Version None)
Quarter: 2009Q4

REPORT INFORMATION
  Report Type: 
  Country: None (occurrence: None)
  Receive Date: 20091129
  Receipt Date: 20091117
  Transmission Date: 20100525
  Serious: Yes (Death, Life-Threatening, Hospitalization, Other)
  Sender: FDA-Public Use
  Company Number: PHHY2009JP44470

PATIENT
  Age: 64 Year
  Sex: Female
  Weight: 66 kg

DRUGS (49)
  1. ICL670A ICL+DISTAB [Suspect]
     Indication: IRON OVERLOAD
     Dosage: 500 MG/DAY
     Route: 048
     Dates: start: 20080815, end: 20080901
  2. ICL670A ICL+DISTAB [Suspect]
     Dosage: 250 MG PER DAY
     Route: 048
     Dates: start: 20080902, end: 20080905
  3. ICL670A ICL+DISTAB [Suspect]
     Dosage: 125 MG PER DAY
     Route: 048
     Dates: start: 20080906, end: 20081003
  4. ICL670A ICL+DISTAB [Suspect]
     Dosage: 250 MG PER DAY
     Route: 048
     Dates: start: 20081004, end: 20081021
  5. ICL670A ICL+DISTAB [Suspect]
     Dosage: 375 MG PER DAY
     Route: 048
     Dates: start: 20081022, end: 20081031
  6. ICL670A ICL+DISTAB [Suspect]
     Dosage: 500 MG PER DAY
     Route: 048
     Dates: start: 20081101, end: 20081107
  7. ICL670A ICL+DISTAB [Suspect]
     Dosage: 250 MG PER DAY
     Route: 048
     Dates: start: 20081108
  8. ICL670A ICL+DISTAB [Suspect]
     Dosage: 250 MG PER DAY
     Route: 048
     Dates: start: 20090215, end: 20090419
  9. ICL670A ICL+DISTAB [Suspect]
     Dosage: 375 MG PER DAY
     Route: 048
     Dates: start: 20090420, end: 20090602
  10. ICL670A ICL+DISTAB [Suspect]
     Dosage: 500 MG PER DAY
     Route: 048
     Dates: start: 20090603, end: 20090912
  11. NEORAL [Suspect]
     Indication: APLASTIC ANAEMIA
     Dosage: 150 MG PER DAY
     Route: 048
     Dates: start: 20080801
  12. NEORAL [Suspect]
     Dosage: 225 MG PER DAY
     Route: 048
     Dates: start: 20090216
  13. BAKTAR [Suspect]
     Indication: PROPHYLAXIS
     Dosage: 1 DF DAILY
     Route: 048
     Dates: start: 20081110
  14. LYMPHOGLOBULINE [Suspect]
     Dosage: 900 MG DAILY
     Route: 048
     Dates: start: 20081110, end: 20081114
  15. DIFLUCAN [Concomitant]
     Indication: BLOOD BILIRUBIN INCREASED
     Dosage: 100 MG, UNK
     Route: 048
     Dates: start: 20080822, end: 20090528
  16. ZANTAC [Concomitant]
     Indication: PROPHYLAXIS
     Dosage: 300 MG, UNK
     Route: 048
     Dates: start: 20080801
  17. URSO 250 [Concomitant]
     Indication: BLOOD BILIRUBIN INCREASED
     Dosage: 600 MG, UNK
     Route: 048
     Dates: start: 20081118, end: 20081209
  18. SOLU-MEDROL [Concomitant]
     Indication: BLOOD BILIRUBIN INCREASED
     Dosage: 120 MG, UNK
     Route: 048
     Dates: start: 20081110, end: 20081114
  19. PREDONINE [Concomitant]
     Indication: BLOOD BILIRUBIN INCREASED
     Dosage: 60 MG, UNK
     Route: 048
     Dates: start: 20081115
  20. PREDONINE [Concomitant]
     Dosage: 30 MG, UNK
     Route: 048
  21. PREDONINE [Concomitant]
     Dosage: 15 MG, UNK
     Route: 048
  22. PREDONINE [Concomitant]
     Dosage: 5 MG, UNK
     Route: 048
  23. PREDONINE [Concomitant]
     Dosage: 2.5 MG, UNK
     Route: 048
     Dates: end: 20090120
  24. ACYCLOVIR [Concomitant]
     Indication: BLOOD BILIRUBIN INCREASED
     Dosage: 750 MG, UNK
     Dates: start: 20090120, end: 20090202
  25. MAXIPIME [Concomitant]
     Indication: BLOOD BILIRUBIN INCREASED
     Dosage: 2 G, UNK
     Dates: start: 20080813
  26. MAXIPIME [Concomitant]
     Dosage: 2 G, UNK
  27. MAXIPIME [Concomitant]
     Dosage: 2 G, UNK
  28. MAXIPIME [Concomitant]
     Dosage: 2 G, UNK
     Dates: end: 20090810
  29. CARBENIN [Concomitant]
     Indication: BLOOD BILIRUBIN INCREASED
     Dosage: 1 G, UNK
     Dates: start: 20080822
  30. CARBENIN [Concomitant]
     Dosage: 1 G, UNK
  31. CARBENIN [Concomitant]
     Dosage: 1 G, UNK
     Dates: end: 20090912
  32. FUNGUARD [Concomitant]
     Indication: BLOOD BILIRUBIN INCREASED
     Dosage: 150 MG, UNK
     Dates: start: 20080904
  33. FUNGUARD [Concomitant]
     Dosage: 150 MG, UNK
  34. FUNGUARD [Concomitant]
     Dosage: 150 MG, UNK
     Dates: end: 20090612
  35. GRAN [Concomitant]
     Indication: BLOOD BILIRUBIN INCREASED
     Dosage: 450 UG, UNK
     Dates: start: 20080904
  36. GRAN [Concomitant]
     Dosage: 450 UG, UNK
  37. GRAN [Concomitant]
     Dosage: 600 UG, UNK
  38. GRAN [Concomitant]
     Dosage: 600 UG, UNK
  39. GRAN [Concomitant]
     Dosage: 600 UG, UNK
  40. GRAN [Concomitant]
     Dosage: 600 UG, UNK
  41. GRAN [Concomitant]
     Dosage: 600 UG, UNK
     Dates: end: 20090527
  42. GLOVENIN [Concomitant]
     Indication: BLOOD BILIRUBIN INCREASED
     Dosage: 5 G, UNK
     Dates: start: 20090505, end: 20090507
  43. ITRIZOLE [Concomitant]
     Indication: BLOOD BILIRUBIN INCREASED
     Dosage: 200 MG, UNK
     Route: 048
     Dates: start: 20090529
  44. TOBRACIN [Concomitant]
     Indication: BLOOD BILIRUBIN INCREASED
     Dosage: 120 MG, UNK
     Dates: start: 20090528, end: 20090609
  45. RED CELLS CONCENTRATED [Concomitant]
     Dosage: 2 UNITS EVERY WEEK
     Dates: start: 20080617, end: 20081109
  46. RED CELLS CONCENTRATED [Concomitant]
     Dosage: 2 UNITS THREE TIMES PER WEEK
     Dates: start: 20081110, end: 20081115
  47. RED CELLS CONCENTRATED [Concomitant]
     Dosage: 2 UNITS EVERY 2 WEEKS
     Dates: start: 20081119, end: 20090105
  48. RED CELLS CONCENTRATED [Concomitant]
     Dosage: 2 UNITS
     Dates: start: 20090113, end: 20090215
  49. RED CELLS CONCENTRATED [Concomitant]
     Dosage: 2 UNITS 1.5 TIMES PER WEEK
     Dates: start: 20090216, end: 20090816

REACTIONS (11)
  - BLOOD BILIRUBIN INCREASED [None]
  - FACIAL BONES FRACTURE [None]
  - FALL [None]
  - FEBRILE NEUTROPENIA [None]
  - HEPATIC FUNCTION ABNORMAL [None]
  - HERPES ZOSTER [None]
  - INFECTION [None]
  - PULMONARY INFARCTION [None]
  - RENAL IMPAIRMENT [None]
  - SEPTIC SHOCK [None]
  - SHOCK HAEMORRHAGIC [None]
